FAERS Safety Report 14708241 (Version 1)
Quarter: 2018Q2

REPORT INFORMATION
  Report Type: Spontaneous
  Country: FR (occurrence: FR)
  Receive Date: 20180403
  Receipt Date: 20180403
  Transmission Date: 20180711
  Serious: Yes (Hospitalization, Other)
  Sender: FDA-Public Use
  Company Number: FR-BAUSCH-BL-2018-008227

PATIENT
  Age: 4 Year
  Sex: Male

DRUGS (13)
  1. VINCRISTINE [Suspect]
     Active Substance: VINCRISTINE
     Indication: ACUTE LYMPHOCYTIC LEUKAEMIA
     Route: 042
     Dates: start: 20180103, end: 20180201
  2. ERGOCALCIFEROL. [Concomitant]
     Active Substance: ERGOCALCIFEROL
     Indication: PROPHYLAXIS
  3. VANCOMYCIN [Concomitant]
     Active Substance: VANCOMYCIN
     Indication: BACTERAEMIA
  4. ESOMEPRAZOLE [Concomitant]
     Active Substance: ESOMEPRAZOLE
     Indication: ANTACID THERAPY
  5. 6-MERCAPTOPURINE MONOHYDRATE [Suspect]
     Active Substance: MERCAPTOPURINE
     Indication: ACUTE LYMPHOCYTIC LEUKAEMIA
     Route: 048
     Dates: start: 20180103, end: 20180204
  6. ONCASPAR [Suspect]
     Active Substance: PEGASPARGASE
     Indication: ACUTE LYMPHOCYTIC LEUKAEMIA
     Route: 042
     Dates: start: 20180110, end: 20180110
  7. TINZAPARIN [Concomitant]
     Active Substance: TINZAPARIN
     Indication: ANTICOAGULANT THERAPY
  8. RASBURICASE [Concomitant]
     Active Substance: RASBURICASE
     Indication: TUMOUR LYSIS SYNDROME
  9. DEXAMETHASONE. [Suspect]
     Active Substance: DEXAMETHASONE
     Indication: ACUTE LYMPHOCYTIC LEUKAEMIA
     Route: 048
     Dates: start: 20180103, end: 20180205
  10. METHOTREXATE. [Suspect]
     Active Substance: METHOTREXATE
     Indication: ACUTE LYMPHOCYTIC LEUKAEMIA
     Route: 037
     Dates: start: 20180104, end: 20180202
  11. AMPHOTERICIN B. [Concomitant]
     Active Substance: AMPHOTERICIN B
     Indication: CANDIDA INFECTION
  12. CALCIUM [Concomitant]
     Active Substance: CALCIUM
     Indication: PROPHYLAXIS
  13. PIPERACILLIN TAZOBACTAM PA [Concomitant]
     Active Substance: PIPERACILLIN SODIUM\TAZOBACTAM SODIUM
     Indication: PYREXIA

REACTIONS (1)
  - Bacteraemia [Not Recovered/Not Resolved]

NARRATIVE: CASE EVENT DATE: 20180203
